FAERS Safety Report 9555381 (Version 1)
Quarter: 2013Q3

REPORT INFORMATION
  Report Type: Spontaneous
  Country: US (occurrence: US)
  Receive Date: 20130926
  Receipt Date: 20130926
  Transmission Date: 20140515
  Serious: No
  Sender: FDA-Public Use
  Company Number: US-BAYER-2013-112999

PATIENT
  Sex: Female

DRUGS (10)
  1. BETASERON [Suspect]
     Indication: PRODUCT USED FOR UNKNOWN INDICATION
     Dosage: UNK
     Dates: start: 2009, end: 20130408
  2. AMPYRA [Suspect]
     Indication: GAIT DISTURBANCE
     Dosage: 10 MG, BID
     Route: 048
     Dates: start: 201010
  3. CELLCEPT [Concomitant]
     Dosage: 500 MG, TID
     Route: 048
     Dates: start: 20130805
  4. BUDEPRION [Concomitant]
     Dosage: 300 MG IN MORNING + 150MG AT BED TIME
  5. MODAFINIL [Concomitant]
     Dosage: 200 MG, BID
     Route: 048
  6. LEVOTHYROXINE SODIUM [Concomitant]
     Dosage: 0.075 MG, QD
     Route: 048
  7. FOSAMAX [Concomitant]
     Dosage: 70 MG, OW
     Route: 048
  8. TOPROL XL [Concomitant]
     Dosage: 50 MG, QD
     Route: 048
     Dates: start: 2008
  9. BACLOFEN [Concomitant]
     Dosage: UNK
     Dates: start: 2007
  10. MIRABEGRON [Concomitant]
     Dosage: UNK
     Dates: start: 201304

REACTIONS (3)
  - Memory impairment [Not Recovered/Not Resolved]
  - Nervous system disorder [Unknown]
  - Insomnia [Not Recovered/Not Resolved]
